FAERS Safety Report 24107530 (Version 1)
Quarter: 2024Q3

REPORT INFORMATION
  Report Type: Spontaneous
  Country: CA (occurrence: CA)
  Receive Date: 20240718
  Receipt Date: 20240718
  Transmission Date: 20241016
  Serious: Yes (Other)
  Sender: NOVO NORDISK
  Company Number: None

PATIENT
  Age: 59 Year
  Sex: Male
  Weight: 82.1 kg

DRUGS (2)
  1. OZEMPIC [Suspect]
     Active Substance: SEMAGLUTIDE
     Indication: Weight control
  2. OZEMPIC [Suspect]
     Active Substance: SEMAGLUTIDE
     Indication: Type 2 diabetes mellitus
     Dosage: 2 MG, QW (THERAPY DURATION: 42 DAYS)
     Route: 058

REACTIONS (10)
  - Ageusia [Recovered/Resolved]
  - Anxiety [Recovered/Resolved]
  - Hypophagia [Recovered/Resolved]
  - Panic attack [Recovered/Resolved]
  - Retching [Recovered/Resolved]
  - Weight decreased [Recovered/Resolved]
  - Blood glucose increased [Recovered/Resolved]
  - Abdominal discomfort [Recovered/Resolved]
  - Diabetes mellitus inadequate control [Recovered/Resolved]
  - Nausea [Recovered/Resolved]
